FAERS Safety Report 13246334 (Version 1)
Quarter: 2017Q1

REPORT INFORMATION
  Report Type: Spontaneous
  Country: CA (occurrence: CA)
  Receive Date: 20170217
  Receipt Date: 20170217
  Transmission Date: 20170428
  Serious: Yes (Hospitalization, Other)
  Sender: FDA-Public Use
  Company Number: CA-TEVA-740777USA

PATIENT
  Age: 63 Year
  Sex: Female

DRUGS (3)
  1. PREDNISONE. [Suspect]
     Active Substance: PREDNISONE
     Indication: IMMUNOSUPPRESSANT DRUG THERAPY
     Route: 065
  2. NIVOLUMAB [Suspect]
     Active Substance: NIVOLUMAB
     Indication: METASTATIC MALIGNANT MELANOMA
     Dosage: SINGLE DOSE OF 324MG
     Route: 042
     Dates: start: 20160107
  3. METHYLPREDNISOLONE. [Suspect]
     Active Substance: METHYLPREDNISOLONE
     Indication: TRANSPLANT DYSFUNCTION
     Dosage: 500 MG DAILY
     Route: 042

REACTIONS (3)
  - Diabetic ketoacidosis [Unknown]
  - Kidney transplant rejection [Not Recovered/Not Resolved]
  - Renal failure [Not Recovered/Not Resolved]
